FAERS Safety Report 8478574-3 (Version None)
Quarter: 2012Q2

REPORT INFORMATION
  Report Type: 
  Country: None (occurrence: None)
  Receive Date: 20120629
  Receipt Date: 20120618
  Transmission Date: 20120825
  Serious: Yes (Hospitalization, Other)
  Sender: FDA-Public Use
  Company Number: AU-CELGENEUS-008-21880-12062332

PATIENT
  Sex: Male
  Weight: 120 kg

DRUGS (13)
  1. ASPIRIN [Concomitant]
     Dosage: 100 MILLIGRAM
     Route: 065
  2. RABEPRAZOLE SODIUM [Concomitant]
     Dosage: 40 MILLIGRAM
     Route: 065
  3. VALACYCLOVIR HYDROCHLORIDE [Concomitant]
     Dosage: 500 MILLIGRAM
     Route: 065
  4. REVLIMID [Suspect]
     Indication: MULTIPLE MYELOMA
     Dosage: 15 MILLIGRAM
     Route: 048
     Dates: start: 20111107
  5. PREDNISONE TAB [Suspect]
     Indication: MULTIPLE MYELOMA
     Route: 065
     Dates: start: 20111107
  6. ORDINE [Concomitant]
     Dosage: 2-4
  7. ACETAMINOPHEN [Concomitant]
     Dosage: 2 TABLET
     Route: 065
  8. FENTANYL CITRATE [Concomitant]
     Dosage: CMG/HR
     Route: 065
  9. MAGMIN [Concomitant]
     Dosage: 1000 MILLIGRAM
     Route: 065
  10. PERINDOPRIL ERBUMINE [Concomitant]
     Dosage: 8 MILLIGRAM
     Route: 065
  11. LACTULOSE [Concomitant]
     Dosage: 90 MILLILITER
     Route: 065
  12. PREDNISONE TAB [Suspect]
     Dosage: 5 MILLIGRAM
     Route: 065
  13. ALLOPURINOL [Concomitant]
     Dosage: 300 MILLIGRAM
     Route: 065

REACTIONS (2)
  - PANCREATIC CARCINOMA [None]
  - JAUNDICE [None]
